FAERS Safety Report 20085856 (Version 2)
Quarter: 2021Q4

REPORT INFORMATION
  Report Type: Spontaneous
  Country: CA (occurrence: CA)
  Receive Date: 20211118
  Receipt Date: 20211202
  Transmission Date: 20220303
  Serious: Yes (Hospitalization, Other)
  Sender: FDA-Public Use
  Company Number: CA-PFIZER INC-2019534802

PATIENT
  Age: 65 Year
  Sex: Female

DRUGS (15)
  1. IBRANCE [Suspect]
     Active Substance: PALBOCICLIB
     Indication: Breast cancer metastatic
     Dosage: 75 MG, CYCLIC (3 WEEKS ON, 1 WEEK OFF)
     Route: 048
     Dates: start: 20200212
  2. IBRANCE [Suspect]
     Active Substance: PALBOCICLIB
     Dosage: 100 MG, DAILY FOR 21 DAYS
     Route: 048
     Dates: start: 20210129
  3. ATORVASTATIN [Concomitant]
     Active Substance: ATORVASTATIN
     Dosage: 20 MG QHS
  4. AMANTADINE [Concomitant]
     Active Substance: AMANTADINE
     Dosage: 100 MG, 3X/DAY (QHS )
  5. CALCIUM [Concomitant]
     Active Substance: CALCIUM
     Dosage: 500 MG
  6. CELECOXIB [Concomitant]
     Active Substance: CELECOXIB
     Dosage: 100 MG QAM AND QHS
  7. CLONAZEPAM [Concomitant]
     Active Substance: CLONAZEPAM
     Dosage: 0.5 MG, 2X/DAY
  8. DONEPEZIL [Concomitant]
     Active Substance: DONEPEZIL
     Dosage: 10 MG QHS
  9. FASLODEX [Concomitant]
     Active Substance: FULVESTRANT
     Dosage: 500 MG, UNK (EVERY 4 WEEKS)
     Route: 030
  10. LEVODOPA [Concomitant]
     Active Substance: LEVODOPA
     Dosage: 0.25 DF, 4X/DAY, 100/25 MG
  11. LEVOFLOXACIN [Concomitant]
     Active Substance: LEVOFLOXACIN
     Dosage: 80 IU, 2X/DAY
  12. PANTOPRAZOLE [Concomitant]
     Active Substance: PANTOPRAZOLE
     Dosage: 40 MG, 1X/DAY QAM
  13. SERTRALINE [Concomitant]
     Active Substance: SERTRALINE HYDROCHLORIDE
     Dosage: 100 MG, 1X/DAY QAM
  14. TAMOXIFEN CITRATE [Concomitant]
     Active Substance: TAMOXIFEN CITRATE
     Dosage: 20 MG, 1X/DAY, QAM
  15. ERGOCALCIFEROL [Concomitant]
     Active Substance: ERGOCALCIFEROL
     Dosage: UNK, 1X/DAY

REACTIONS (3)
  - Fall [Unknown]
  - Dementia [Unknown]
  - Parkinson^s disease [Unknown]
